FAERS Safety Report 13451736 (Version 1)
Quarter: 2017Q2

REPORT INFORMATION
  Report Type: Spontaneous
  Country: US (occurrence: US)
  Receive Date: 20170418
  Receipt Date: 20170418
  Transmission Date: 20170830
  Serious: Yes (Disabling, Other)
  Sender: FDA-Public Use
  Company Number: None

PATIENT
  Age: 73 Year
  Sex: Female
  Weight: 88.08 kg

DRUGS (2)
  1. TYLENOL [Concomitant]
     Active Substance: ACETAMINOPHEN
  2. LOSARTAN-HCTZ 50-12.5MG TAB (LOSARTAN POTASSIUM 50MG TABS) [Suspect]
     Active Substance: HYDROCHLOROTHIAZIDE\LOSARTAN POTASSIUM
     Indication: BLOOD PRESSURE INCREASED
     Dosage: QUANITY - 90 DAY SUPPLY
     Route: 048
     Dates: start: 20170124, end: 20170228

REACTIONS (3)
  - Epistaxis [None]
  - Optic neuropathy [None]
  - Dizziness [None]

NARRATIVE: CASE EVENT DATE: 20170301
